FAERS Safety Report 20818756 (Version 2)
Quarter: 2022Q3

REPORT INFORMATION
  Report Type: Spontaneous
  Country: BR (occurrence: BR)
  Receive Date: 20220512
  Receipt Date: 20220708
  Transmission Date: 20221027
  Serious: Yes (Other)
  Sender: FDA-Public Use
  Company Number: BR-NOVOPROD-915599

PATIENT
  Age: 2 Year
  Sex: Male

DRUGS (8)
  1. TRESIBA [Suspect]
     Active Substance: INSULIN DEGLUDEC
     Indication: Type 1 diabetes mellitus
     Dosage: 4.0 IU AC
     Dates: start: 20210525
  2. TRESIBA [Suspect]
     Active Substance: INSULIN DEGLUDEC
     Dosage: 7.0 IU AC
     Route: 065
  3. TRESIBA [Suspect]
     Active Substance: INSULIN DEGLUDEC
     Dosage: 6.0 IU AC
     Route: 065
     Dates: start: 20211027
  4. TRESIBA [Suspect]
     Active Substance: INSULIN DEGLUDEC
     Dosage: 5.0 IU AC
     Route: 065
     Dates: start: 20210628
  5. FIASP [Suspect]
     Active Substance: INSULIN ASPART
     Dosage: 25/25/25/25G + }250: 0.5 IU; }300: 1.0 IU (FS=100).
     Route: 065
  6. FIASP [Suspect]
     Active Substance: INSULIN ASPART
     Dosage: 15/20/20/25G + GM-120/200 (DAY) E BC: GM ? 140/220 (AJ)
     Route: 065
     Dates: start: 20211027
  7. FIASP [Suspect]
     Active Substance: INSULIN ASPART
     Dosage: 25/25/25/25G + }250: 0.5 IU; }300: 1.0 IU (FS=100)
     Route: 065
     Dates: start: 20210628
  8. FIASP [Suspect]
     Active Substance: INSULIN ASPART
     Indication: Type 1 diabetes mellitus
     Dosage: 25/25/25/30G + }250: 0.5 IU; }300: 1.0 IU
     Dates: start: 20210525

REACTIONS (5)
  - Norovirus infection [Unknown]
  - Upper respiratory tract infection [Unknown]
  - Hypoglycaemia [Unknown]
  - Hyperglycaemia [Unknown]
  - Conjunctivitis [Unknown]

NARRATIVE: CASE EVENT DATE: 20210926
